APPROVED DRUG PRODUCT: FOSINOPRIL SODIUM
Active Ingredient: FOSINOPRIL SODIUM
Strength: 20MG
Dosage Form/Route: TABLET;ORAL
Application: A077222 | Product #002 | TE Code: AB
Applicant: INVAGEN PHARMACEUTICALS INC
Approved: Apr 20, 2005 | RLD: No | RS: No | Type: RX